FAERS Safety Report 8964432 (Version 1)
Quarter: 2012Q4

REPORT INFORMATION
  Report Type: 
  Country: US (occurrence: US)
  Receive Date: 20121214
  Receipt Date: 20121214
  Transmission Date: 20130627
  Serious: No
  Sender: FDA-Public Use
  Company Number: US-GLAXOSMITHKLINE-A0988469A

PATIENT
  Age: 80 Year
  Sex: Male

DRUGS (1)
  1. AVODART [Suspect]
     Indication: PRODUCT USED FOR UNKNOWN INDICATION
     Dosage: .5MG Per day
     Route: 048

REACTIONS (3)
  - Dialysis [Recovered/Resolved]
  - Prostatic specific antigen increased [Unknown]
  - Drug ineffective [Unknown]
